FAERS Safety Report 10090414 (Version 2)
Quarter: 2014Q2

REPORT INFORMATION
  Report Type: Spontaneous
  Country: US (occurrence: US)
  Receive Date: 20140421
  Receipt Date: 20140512
  Transmission Date: 20141212
  Serious: Yes (Hospitalization)
  Sender: FDA-Public Use
  Company Number: US-BAYER-2014-056371

PATIENT
  Age: 39 Year
  Sex: Female

DRUGS (5)
  1. YAZ [Suspect]
  2. PREDNISONE [Concomitant]
     Dosage: 10 MG, TAKE AS UTD (UNTIL DONE))
  3. NEXIUM [Concomitant]
  4. ZYRTEC [Concomitant]
  5. DOXYCYCLINE [Concomitant]
     Dosage: 100 MG, UNK

REACTIONS (1)
  - Deep vein thrombosis [None]
